FAERS Safety Report 15810115 (Version 1)
Quarter: 2019Q1

REPORT INFORMATION
  Report Type: Spontaneous
  Country: US (occurrence: US)
  Receive Date: 20190111
  Receipt Date: 20190111
  Transmission Date: 20190417
  Serious: No
  Sender: FDA-Public Use
  Company Number: US-ROCHE-2151373

PATIENT
  Age: 90 Year
  Sex: Male
  Weight: 90.8 kg

DRUGS (1)
  1. RITUXAN [Suspect]
     Active Substance: RITUXIMAB
     Indication: WALDENSTROM^S MACROGLOBULINAEMIA
     Dosage: DOSE WAS BETWEEN 700 - 750 MG PER DOSE FOR 4 WEEKS
     Route: 042
     Dates: start: 2006

REACTIONS (2)
  - Therapeutic response decreased [Unknown]
  - No adverse event [Unknown]
